FAERS Safety Report 24564590 (Version 3)
Quarter: 2025Q4

REPORT INFORMATION
  Report Type: Spontaneous
  Country: JP (occurrence: JP)
  Receive Date: 20241030
  Receipt Date: 20251013
  Transmission Date: 20260118
  Serious: Yes (Other)
  Sender: PFIZER
  Company Number: JP-PFIZER INC-PV202400139600

PATIENT
  Age: 43 Year
  Sex: Female

DRUGS (10)
  1. METHOTREXATE SODIUM [Suspect]
     Active Substance: METHOTREXATE SODIUM
     Indication: Acute lymphocytic leukaemia
     Dosage: 5 MG
     Route: 037
     Dates: start: 2022
  2. METHOTREXATE SODIUM [Suspect]
     Active Substance: METHOTREXATE SODIUM
     Indication: Central nervous system leukaemia
     Dosage: 5 MG, WEEKLY
     Route: 037
     Dates: start: 2022
  3. LEUCOVORIN CALCIUM [Concomitant]
     Active Substance: LEUCOVORIN CALCIUM
     Indication: Chemotherapy toxicity attenuation
     Dosage: UNK, 4X/DAY
     Dates: start: 2022
  4. LEUCOVORIN CALCIUM [Concomitant]
     Active Substance: LEUCOVORIN CALCIUM
     Dosage: 15 MG, 4X/DAY, EVERY 3H FOR NINE DOSES AND THEN EVERY 6H, AS IN HIGHDOSE
     Route: 042
     Dates: start: 2022
  5. LEUCOVORIN CALCIUM [Concomitant]
     Active Substance: LEUCOVORIN CALCIUM
     Dosage: 15 MG, 4X/DAY, EVERY 3H FOR NINE DOSES AND THEN EVERY 6H, AS IN HIGHDOSE
     Route: 042
     Dates: start: 2022
  6. LEUCOVORIN CALCIUM [Concomitant]
     Active Substance: LEUCOVORIN CALCIUM
     Dosage: LEUCOVORIN ORALLY EVERY 6 H FOR FOUR DAYS
     Route: 048
     Dates: start: 2022
  7. DEXAMETHASONE [Concomitant]
     Active Substance: DEXAMETHASONE
     Indication: Acute lymphocytic leukaemia recurrent
     Dosage: 6.6 MG
     Route: 037
     Dates: start: 2022
  8. DEXAMETHASONE [Concomitant]
     Active Substance: DEXAMETHASONE
     Indication: Central nervous system leukaemia
     Dosage: 3.3 MG
     Route: 037
     Dates: start: 2022
  9. CYTARABINE [Concomitant]
     Active Substance: CYTARABINE
     Indication: Acute lymphocytic leukaemia recurrent
     Dosage: 40 MG
     Route: 037
     Dates: start: 2022
  10. CYTARABINE [Concomitant]
     Active Substance: CYTARABINE
     Indication: Central nervous system leukaemia
     Dosage: 20 MG
     Route: 037
     Dates: start: 2022

REACTIONS (1)
  - Myelopathy [Recovered/Resolved]

NARRATIVE: CASE EVENT DATE: 20220101
